FAERS Safety Report 20056754 (Version 11)
Quarter: 2022Q3

REPORT INFORMATION
  Report Type: Report from Study
  Country: US (occurrence: US)
  Receive Date: 20211111
  Receipt Date: 20220808
  Transmission Date: 20221027
  Serious: Yes (Hospitalization, Other)
  Sender: FDA-Public Use
  Company Number: US-TAKEDA-2021TUS055309

PATIENT
  Sex: Female

DRUGS (25)
  1. TEDUGLUTIDE [Suspect]
     Active Substance: TEDUGLUTIDE
     Indication: Short-bowel syndrome
     Dosage: 2.45 MILLIGRAM, QD
     Route: 058
     Dates: start: 202108
  2. TEDUGLUTIDE [Suspect]
     Active Substance: TEDUGLUTIDE
     Indication: Short-bowel syndrome
     Dosage: 2.45 MILLIGRAM, QD
     Route: 058
     Dates: start: 202108
  3. TEDUGLUTIDE [Suspect]
     Active Substance: TEDUGLUTIDE
     Indication: Short-bowel syndrome
     Dosage: 2.45 MILLIGRAM, QD
     Route: 058
     Dates: start: 202108
  4. TEDUGLUTIDE [Suspect]
     Active Substance: TEDUGLUTIDE
     Indication: Short-bowel syndrome
     Dosage: 2.45 MILLIGRAM, QD
     Route: 058
     Dates: start: 202108
  5. TEDUGLUTIDE [Suspect]
     Active Substance: TEDUGLUTIDE
     Dosage: 2.45 MILLILITER, QD
     Route: 058
     Dates: start: 202108
  6. TEDUGLUTIDE [Suspect]
     Active Substance: TEDUGLUTIDE
     Dosage: 2.45 MILLILITER, QD
     Route: 058
     Dates: start: 202108
  7. TEDUGLUTIDE [Suspect]
     Active Substance: TEDUGLUTIDE
     Dosage: 2.45 MILLILITER, QD
     Route: 058
     Dates: start: 202108
  8. TEDUGLUTIDE [Suspect]
     Active Substance: TEDUGLUTIDE
     Dosage: 2.45 MILLILITER, QD
     Route: 058
     Dates: start: 202108
  9. TEDUGLUTIDE [Suspect]
     Active Substance: TEDUGLUTIDE
     Dosage: 0.245 MILLILITER, QD
     Route: 058
     Dates: start: 202108
  10. TEDUGLUTIDE [Suspect]
     Active Substance: TEDUGLUTIDE
     Dosage: 0.245 MILLILITER, QD
     Route: 058
     Dates: start: 202108
  11. TEDUGLUTIDE [Suspect]
     Active Substance: TEDUGLUTIDE
     Dosage: 0.245 MILLILITER, QD
     Route: 058
     Dates: start: 202108
  12. TEDUGLUTIDE [Suspect]
     Active Substance: TEDUGLUTIDE
     Dosage: 0.245 MILLILITER, QD
     Route: 058
     Dates: start: 202108
  13. TEDUGLUTIDE [Suspect]
     Active Substance: TEDUGLUTIDE
     Dosage: 2.45 MILLIGRAM, QD
     Route: 058
     Dates: start: 20210805
  14. TEDUGLUTIDE [Suspect]
     Active Substance: TEDUGLUTIDE
     Dosage: 2.45 MILLIGRAM, QD
     Route: 058
     Dates: start: 20210805
  15. TEDUGLUTIDE [Suspect]
     Active Substance: TEDUGLUTIDE
     Dosage: 2.45 MILLIGRAM, QD
     Route: 058
     Dates: start: 20210805
  16. TEDUGLUTIDE [Suspect]
     Active Substance: TEDUGLUTIDE
     Dosage: 2.45 MILLIGRAM, QD
     Route: 058
     Dates: start: 20210805
  17. TEDUGLUTIDE [Suspect]
     Active Substance: TEDUGLUTIDE
     Dosage: 2.45 MILLIGRAM, QD
     Route: 058
     Dates: start: 20211010
  18. TEDUGLUTIDE [Suspect]
     Active Substance: TEDUGLUTIDE
     Dosage: 2.45 MILLIGRAM, QD
     Route: 058
     Dates: start: 20211010
  19. TEDUGLUTIDE [Suspect]
     Active Substance: TEDUGLUTIDE
     Dosage: 2.45 MILLIGRAM, QD
     Route: 058
     Dates: start: 20211010
  20. TEDUGLUTIDE [Suspect]
     Active Substance: TEDUGLUTIDE
     Dosage: 2.45 MILLIGRAM, QD
     Route: 058
     Dates: start: 20211010
  21. TEDUGLUTIDE [Suspect]
     Active Substance: TEDUGLUTIDE
     Dosage: 2.45 MILLIGRAM, QD
     Route: 058
     Dates: start: 20210806
  22. TEDUGLUTIDE [Suspect]
     Active Substance: TEDUGLUTIDE
     Dosage: 2.45 MILLIGRAM, QD
     Route: 058
     Dates: start: 20210806
  23. TEDUGLUTIDE [Suspect]
     Active Substance: TEDUGLUTIDE
     Dosage: 2.45 MILLIGRAM, QD
     Route: 058
     Dates: start: 20210806
  24. TEDUGLUTIDE [Suspect]
     Active Substance: TEDUGLUTIDE
     Dosage: 2.45 MILLIGRAM, QD
     Route: 058
     Dates: start: 20210806
  25. BUMEX [Concomitant]
     Active Substance: BUMETANIDE
     Dosage: UNK

REACTIONS (24)
  - Abdominal hernia [Unknown]
  - Joint swelling [Not Recovered/Not Resolved]
  - Gastrointestinal ulcer haemorrhage [Unknown]
  - Pancreatitis acute [Unknown]
  - Rectal haemorrhage [Unknown]
  - Intestinal prolapse [Unknown]
  - Hepatitis [Unknown]
  - Tooth infection [Unknown]
  - Weight increased [Unknown]
  - COVID-19 [Not Recovered/Not Resolved]
  - Diarrhoea [Unknown]
  - Fatigue [Not Recovered/Not Resolved]
  - Abdominal distension [Unknown]
  - Abdominal pain [Unknown]
  - Headache [Not Recovered/Not Resolved]
  - Rectal prolapse [Unknown]
  - Gastritis [Unknown]
  - Product dose omission issue [Unknown]
  - Peripheral swelling [Unknown]
  - Condition aggravated [Unknown]
  - Liver disorder [Unknown]
  - Muscle spasms [Unknown]
  - Anaemia [Unknown]
  - Weight decreased [Unknown]
